FAERS Safety Report 13518260 (Version 1)
Quarter: 2017Q2

REPORT INFORMATION
  Report Type: Spontaneous
  Country: US (occurrence: US)
  Receive Date: 20170505
  Receipt Date: 20170505
  Transmission Date: 20170830
  Serious: Yes (Other)
  Sender: FDA-Public Use
  Company Number: US-009507513-1705USA000120

PATIENT
  Sex: Female

DRUGS (1)
  1. ETONOGESTREL IMPLANT- UNKNOWN [Suspect]
     Active Substance: ETONOGESTREL
     Indication: CONTRACEPTION
     Dosage: DOSE: SINGLE, EVERY 3 YEARS
     Route: 059

REACTIONS (3)
  - Muscle spasms [Recovered/Resolved]
  - Cyst [Recovered/Resolved]
  - Vaginal haemorrhage [Recovered/Resolved]
